FAERS Safety Report 16938141 (Version 1)
Quarter: 2019Q4

REPORT INFORMATION
  Report Type: Spontaneous
  Country: US (occurrence: US)
  Receive Date: 20191018
  Receipt Date: 20191018
  Transmission Date: 20200122
  Serious: Yes (Other)
  Sender: FDA-Public Use
  Company Number: NVSC2019US002259

PATIENT
  Age: 64 Year
  Sex: Female

DRUGS (4)
  1. SIROLIMUS. [Suspect]
     Active Substance: SIROLIMUS
     Indication: LIVER TRANSPLANT
     Dosage: 1 MG
     Route: 065
     Dates: start: 201808
  2. PREDNISONE. [Suspect]
     Active Substance: PREDNISONE
     Indication: IMMUNOSUPPRESSANT DRUG THERAPY
  3. PREDNISONE. [Suspect]
     Active Substance: PREDNISONE
     Indication: LIVER TRANSPLANT
     Dosage: 1 MG, QD
     Route: 065
     Dates: start: 201808
  4. SIROLIMUS. [Suspect]
     Active Substance: SIROLIMUS
     Indication: IMMUNOSUPPRESSANT DRUG THERAPY

REACTIONS (12)
  - Wound secretion [Recovering/Resolving]
  - Fat necrosis [Recovering/Resolving]
  - Pain [Recovering/Resolving]
  - Sepsis [Recovering/Resolving]
  - Product use in unapproved indication [Unknown]
  - Necrotising fasciitis [Recovering/Resolving]
  - Peripheral swelling [Recovering/Resolving]
  - Skin necrosis [Recovering/Resolving]
  - Purpura [Recovering/Resolving]
  - Thrombosis [Recovering/Resolving]
  - Tachypnoea [Recovering/Resolving]
  - Hypotension [Recovering/Resolving]
